FAERS Safety Report 15475523 (Version 1)
Quarter: 2018Q4

REPORT INFORMATION
  Report Type: Spontaneous
  Country: US (occurrence: US)
  Receive Date: 20181008
  Receipt Date: 20181008
  Transmission Date: 20190205
  Serious: Yes (Hospitalization, Other)
  Sender: FDA-Public Use
  Company Number: US-DSJP-DSU-2017-138474

PATIENT

DRUGS (1)
  1. BENICAR [Suspect]
     Active Substance: OLMESARTAN MEDOXOMIL
     Indication: PRODUCT USED FOR UNKNOWN INDICATION
     Dosage: 20 MG, QD
     Route: 048
     Dates: start: 20110503

REACTIONS (7)
  - Cholecystitis chronic [Recovered/Resolved]
  - Haematochezia [Unknown]
  - Gastrooesophageal reflux disease [Not Recovered/Not Resolved]
  - Sprue-like enteropathy [Recovering/Resolving]
  - Acute kidney injury [Recovering/Resolving]
  - Irritable bowel syndrome [Unknown]
  - Diverticulitis [Recovered/Resolved]

NARRATIVE: CASE EVENT DATE: 201105
